FAERS Safety Report 7486891-9 (Version None)
Quarter: 2011Q2

REPORT INFORMATION
  Report Type: 
  Country: None (occurrence: None)
  Receive Date: 20110517
  Receipt Date: 20100506
  Transmission Date: 20111010
  Serious: Yes (Hospitalization, Other)
  Sender: FDA-Public Use
  Company Number: DE-GENENTECH-318596

PATIENT
  Age: 87 Year
  Sex: Female

DRUGS (2)
  1. LUCENTIS [Suspect]
     Indication: MACULAR DEGENERATION
     Dosage: UNK
     Route: 031
     Dates: start: 20090810
  2. TABLETS (NOT SPECIFIED) [Concomitant]
     Indication: CARDIAC DISORDER

REACTIONS (4)
  - CARDIOVASCULAR DISORDER [None]
  - EYE HAEMORRHAGE [None]
  - CARDIAC DISORDER [None]
  - PULMONARY OEDEMA [None]
